FAERS Safety Report 12503520 (Version 1)
Quarter: 2016Q2

REPORT INFORMATION
  Report Type: Spontaneous
  Country: US (occurrence: None)
  Receive Date: 20160627
  Receipt Date: 20160627
  Transmission Date: 20160815
  Serious: Yes (Hospitalization)
  Sender: FDA-Public Use
  Company Number: None

PATIENT
  Weight: 67.4 kg

DRUGS (2)
  1. ATORVASTATIN [Suspect]
     Active Substance: ATORVASTATIN
     Indication: TRANSIENT ISCHAEMIC ATTACK
     Dosage: PM
     Route: 048
     Dates: start: 20150629, end: 20160309
  2. ATORVASTATIN [Suspect]
     Active Substance: ATORVASTATIN
     Indication: HYPERLIPIDAEMIA
     Dosage: PM
     Route: 048
     Dates: start: 20150629, end: 20160309

REACTIONS (2)
  - Acute kidney injury [None]
  - Rhabdomyolysis [None]

NARRATIVE: CASE EVENT DATE: 20160309
